FAERS Safety Report 6963360-3 (Version None)
Quarter: 2010Q3

REPORT INFORMATION
  Report Type: 
  Country: None (occurrence: None)
  Receive Date: 20100902
  Receipt Date: 20100825
  Transmission Date: 20110219
  Serious: Yes (Other)
  Sender: FDA-Public Use
  Company Number: A0817906A

PATIENT
  Sex: Male

DRUGS (10)
  1. AVANDIA [Suspect]
     Indication: DIABETES MELLITUS
     Route: 048
  2. AVANDAMET [Suspect]
     Route: 048
  3. FLEXERIL [Concomitant]
  4. LOVASTATIN [Concomitant]
  5. AVALIDE [Concomitant]
  6. METHADONE HCL [Concomitant]
  7. EFFEXOR [Concomitant]
  8. DIOVAN [Concomitant]
  9. AVAPRO [Concomitant]
  10. OXYCONTIN [Concomitant]

REACTIONS (1)
  - CEREBROVASCULAR ACCIDENT [None]
